FAERS Safety Report 15946631 (Version 2)
Quarter: 2019Q1

REPORT INFORMATION
  Report Type: Spontaneous
  Country: US (occurrence: US)
  Receive Date: 20190211
  Receipt Date: 20190322
  Transmission Date: 20190417
  Serious: Yes (Other)
  Sender: FDA-Public Use
  Company Number: US-CELGENEUS-USA-20190201393

PATIENT
  Age: 69 Year
  Sex: Female

DRUGS (5)
  1. ASPIRIN. [Concomitant]
     Active Substance: ASPIRIN
     Indication: ANTICOAGULANT THERAPY
     Dosage: 325 MILLIGRAM
     Route: 048
     Dates: start: 20190116
  2. OMEGA 3 [Concomitant]
     Active Substance: OMEGA-3 FATTY ACIDS
     Indication: ROUTINE HEALTH MAINTENANCE
     Route: 048
     Dates: start: 20180719
  3. REVLIMID [Suspect]
     Active Substance: LENALIDOMIDE
     Indication: PLASMA CELL MYELOMA
     Dosage: 25 MILLIGRAM
     Route: 048
     Dates: start: 20190201, end: 20190204
  4. REVLIMID [Suspect]
     Active Substance: LENALIDOMIDE
     Dosage: 15 MILLIGRAM
     Route: 048
     Dates: start: 20190204
  5. IRON [Concomitant]
     Active Substance: IRON
     Indication: ANAEMIA
     Dosage: 18 MILLIGRAM
     Route: 048
     Dates: start: 20190119

REACTIONS (2)
  - Hypersensitivity [Recovered/Resolved]
  - Angioedema [Recovered/Resolved]

NARRATIVE: CASE EVENT DATE: 20190202
